FAERS Safety Report 5502245-6 (Version None)
Quarter: 2007Q4

REPORT INFORMATION
  Report Type: 
  Country: None (occurrence: None)
  Receive Date: 20071030
  Receipt Date: 20071019
  Transmission Date: 20080405
  Serious: Yes (Hospitalization)
  Sender: FDA-Public Use
  Company Number: US-ELI_LILLY_AND_COMPANY-US200710005725

PATIENT
  Sex: Male

DRUGS (10)
  1. BYETTA [Suspect]
     Dosage: 10 MG, 2/D
  2. ACTOS [Concomitant]
     Dosage: 30 UNK, DAILY (1/D)
  3. TRICOR [Concomitant]
     Dosage: 145 UNK, DAILY (1/D)
  4. ALLOPURINOL [Concomitant]
     Dosage: 300 UNK, DAILY (1/D)
  5. INSPRA [Concomitant]
     Dosage: 25 MG, UNKNOWN
  6. FUROSEMIDE [Concomitant]
     Dosage: 1 D/F, UNKNOWN
  7. COREG [Concomitant]
     Dosage: 25 UNK, 2/D
  8. WARFARIN SODIUM [Concomitant]
     Dosage: UNK, UNKNOWN
  9. ISOSORBIDE DINITRATE [Concomitant]
     Dosage: 20 UNK, 2/D
  10. CRESTOR [Concomitant]
     Dosage: 10 UNK, DAILY (1/D)

REACTIONS (2)
  - HOSPITALISATION [None]
  - LIPASE INCREASED [None]
